FAERS Safety Report 19097453 (Version 1)
Quarter: 2021Q2

REPORT INFORMATION
  Report Type: Spontaneous
  Country: US (occurrence: US)
  Receive Date: 20210406
  Receipt Date: 20210406
  Transmission Date: 20210717
  Serious: Yes (Death)
  Sender: FDA-Public Use
  Company Number: None

PATIENT
  Sex: Female

DRUGS (3)
  1. TETRABENAZINE 25MG TAB [Suspect]
     Active Substance: TETRABENAZINE
     Indication: DYSKINESIA
     Dosage: ?          OTHER DOSE:1 + 1/2 TABS;OTHER ROUTE:VIA J?TUBE?
     Dates: start: 20200630
  2. CIPRODEX [Concomitant]
     Active Substance: CIPROFLOXACIN HYDROCHLORIDE\DEXAMETHASONE
  3. SULFATRIM PD [Concomitant]

REACTIONS (1)
  - Death [None]
